FAERS Safety Report 13530773 (Version 1)
Quarter: 2017Q2

REPORT INFORMATION
  Report Type: Spontaneous
  Country: US (occurrence: US)
  Receive Date: 20170509
  Receipt Date: 20170509
  Transmission Date: 20170830
  Serious: Yes (Disabling)
  Sender: FDA-Public Use
  Company Number: None

PATIENT
  Age: 74 Year
  Sex: Female
  Weight: 80.1 kg

DRUGS (13)
  1. RECLAST [Suspect]
     Active Substance: ZOLEDRONIC ACID
     Indication: OSTEOPOROSIS
     Dosage: ?          QUANTITY:1 INFUSION DRIP BAG;OTHER FREQUENCY:ONCE A YEAR;?INTRAVENOUS (NOT OTHERWISE SPECIFIED) ?
     Route: 042
     Dates: start: 20170417, end: 20170417
  2. TRAMADOL. [Concomitant]
     Active Substance: TRAMADOL
  3. METOPROLOL. [Concomitant]
     Active Substance: METOPROLOL
  4. VITAMIN [Concomitant]
     Active Substance: VITAMINS
  5. LEVOTHYROXINE. [Concomitant]
     Active Substance: LEVOTHYROXINE
  6. ZANTAC [Concomitant]
     Active Substance: RANITIDINE HYDROCHLORIDE
  7. VITAMIN D3 [Concomitant]
     Active Substance: CHOLECALCIFEROL
  8. NEXIUM [Concomitant]
     Active Substance: ESOMEPRAZOLE MAGNESIUM
  9. FLECINIDE [Concomitant]
     Active Substance: FLECAINIDE
  10. WARFARIN [Concomitant]
     Active Substance: WARFARIN
  11. ZINC. [Concomitant]
     Active Substance: ZINC
  12. CALCIUM [Concomitant]
     Active Substance: CALCIUM
  13. MAGNESIUM [Concomitant]
     Active Substance: MAGNESIUM

REACTIONS (8)
  - Myalgia [None]
  - Pain [None]
  - Neck pain [None]
  - Arthralgia [None]
  - Bone pain [None]
  - Musculoskeletal pain [None]
  - Influenza like illness [None]
  - Pain in extremity [None]

NARRATIVE: CASE EVENT DATE: 20170417
